FAERS Safety Report 10024063 (Version 3)
Quarter: 2014Q2

REPORT INFORMATION
  Report Type: Spontaneous
  Country: JP (occurrence: JP)
  Receive Date: 20140320
  Receipt Date: 20140612
  Transmission Date: 20141212
  Serious: Yes (Other)
  Sender: FDA-Public Use
  Company Number: JP-PFIZER INC-2014077989

PATIENT
  Age: 4 Year
  Sex: Male

DRUGS (4)
  1. FOSPHENYTOIN SODIUM [Suspect]
     Indication: STATUS EPILEPTICUS
     Dosage: 22.5 MG/KG, ON DAY 2
  2. FOSPHENYTOIN SODIUM [Suspect]
     Dosage: 7.5 MG/KG, ON DAY 3
  3. FOSPHENYTOIN SODIUM [Suspect]
     Dosage: 25.5 MG/KG ON DAY 4
  4. FOSPHENYTOIN SODIUM [Suspect]
     Dosage: 7.5 MG/KG, 2X/DAY, ON DAY 5

REACTIONS (2)
  - Drug ineffective [Unknown]
  - Anticonvulsant drug level below therapeutic [Unknown]
